FAERS Safety Report 9175329 (Version 2)
Quarter: 2013Q2

REPORT INFORMATION
  Report Type: Spontaneous
  Country: US (occurrence: US)
  Receive Date: 20130320
  Receipt Date: 20130516
  Transmission Date: 20140414
  Serious: Yes (Hospitalization)
  Sender: FDA-Public Use
  Company Number: US-JNJFOC-20130202630

PATIENT
  Sex: Female

DRUGS (5)
  1. TOPAMAX [Suspect]
     Indication: EPILEPSY
     Route: 048
     Dates: start: 2000, end: 2009
  2. TOPAMAX [Suspect]
     Indication: MIGRAINE
     Route: 048
     Dates: start: 2000, end: 2009
  3. TOPAMAX [Suspect]
     Indication: CONVULSION
     Route: 048
     Dates: start: 2000, end: 2009
  4. FOLIC ACID [Concomitant]
     Route: 065
  5. MULTIVITAMINS [Concomitant]
     Indication: PRENATAL CARE
     Route: 048

REACTIONS (3)
  - Exposure during pregnancy [Unknown]
  - Polyhydramnios [Recovered/Resolved]
  - Emotional disorder [Unknown]
